FAERS Safety Report 14386708 (Version 1)
Quarter: 2018Q1

REPORT INFORMATION
  Report Type: Spontaneous
  Country: US (occurrence: US)
  Receive Date: 20180115
  Receipt Date: 20180115
  Transmission Date: 20180509
  Serious: Yes (Other)
  Sender: FDA-Public Use
  Company Number: US-SA-2017SA108851

PATIENT
  Age: 76 Year
  Sex: Female
  Weight: 54.43 kg

DRUGS (18)
  1. TRASTUZUMAB. [Concomitant]
     Active Substance: TRASTUZUMAB
     Route: 065
  2. CITALOPRAM [Concomitant]
     Active Substance: CITALOPRAM HYDROBROMIDE
     Route: 065
     Dates: start: 2010
  3. HERCEPTIN [Concomitant]
     Active Substance: TRASTUZUMAB
     Route: 042
  4. ACETAMINOPHEN. [Concomitant]
     Active Substance: ACETAMINOPHEN
  5. ZOLPIDEM [Concomitant]
     Active Substance: ZOLPIDEM\ZOLPIDEM TARTRATE
  6. TAXOTERE [Suspect]
     Active Substance: DOCETAXEL
     Indication: BREAST CANCER FEMALE
     Route: 051
     Dates: start: 20141223, end: 20141223
  7. CETIRIZINE [Concomitant]
     Active Substance: CETIRIZINE HYDROCHLORIDE
  8. ASPIRIN. [Concomitant]
     Active Substance: ASPIRIN
  9. CENTRUM SILVER [Concomitant]
     Active Substance: MINERALS\VITAMINS
     Route: 065
     Dates: start: 1995
  10. PARAPLATIN [Concomitant]
     Active Substance: CARBOPLATIN
     Route: 065
  11. DEXAMETHASONE. [Concomitant]
     Active Substance: DEXAMETHASONE
  12. ZYRTEC [Concomitant]
     Active Substance: CETIRIZINE HYDROCHLORIDE
  13. TAXOTERE [Suspect]
     Active Substance: DOCETAXEL
     Indication: BREAST CANCER FEMALE
     Route: 051
     Dates: start: 20141001, end: 20141001
  14. PANTHENOL/RETINOL/THIAMINE HYDROCHLORIDE/ASCORBIC ACID/ERGOCALCIFEROL/FOLIC ACID/RIBOFLAVIN/NICOTINA [Concomitant]
  15. CARBOPLATIN. [Concomitant]
     Active Substance: CARBOPLATIN
     Route: 065
  16. ONDANSETRON [Concomitant]
     Active Substance: ONDANSETRON
  17. GLUCOSAMINE [Concomitant]
     Active Substance: GLUCOSAMINE
  18. SIMVASTATIN. [Concomitant]
     Active Substance: SIMVASTATIN

REACTIONS (2)
  - Psychological trauma [Unknown]
  - Alopecia [Not Recovered/Not Resolved]

NARRATIVE: CASE EVENT DATE: 20141001
